FAERS Safety Report 6872208-7 (Version None)
Quarter: 2010Q3

REPORT INFORMATION
  Report Type: 
  Country: None (occurrence: None)
  Receive Date: 20100723
  Receipt Date: 20100720
  Transmission Date: 20110219
  Serious: Yes (Other)
  Sender: FDA-Public Use
  Company Number: ES-AMGEN-KDC425499

PATIENT
  Sex: Female

DRUGS (3)
  1. NEUPOGEN [Suspect]
     Indication: PRODUCT USED FOR UNKNOWN INDICATION
  2. BENDAMUSTINE [Concomitant]
     Route: 042
  3. RITUXIMAB [Concomitant]
     Route: 042

REACTIONS (1)
  - FEBRILE NEUTROPENIA [None]
